FAERS Safety Report 7743545-9 (Version None)
Quarter: 2011Q3

REPORT INFORMATION
  Report Type: 
  Country: None (occurrence: None)
  Receive Date: 20110912
  Receipt Date: 20110831
  Transmission Date: 20111222
  Serious: Yes (Other)
  Sender: FDA-Public Use
  Company Number: DE-ROCHE-801720

PATIENT
  Age: 54 Year
  Sex: Female
  Weight: 55 kg

DRUGS (2)
  1. TOCILIZUMAB [Suspect]
     Indication: RHEUMATOID ARTHRITIS
     Dosage: FURTHER APPLICATIONS ON 27-DEC-2010, 25-JAN-2011, 22-FEB-2011, 22-MAR-2011, 19-APR-2011
     Route: 042
     Dates: start: 20101130, end: 20110516
  2. TOCILIZUMAB [Suspect]
     Dosage: DOSIS REDUCED
     Route: 042
     Dates: start: 20110517, end: 20110614

REACTIONS (2)
  - NEUTROPENIA [None]
  - EOSINOPHILIA [None]
